FAERS Safety Report 14703439 (Version 2)
Quarter: 2018Q2

REPORT INFORMATION
  Report Type: Report from Study
  Country: CN (occurrence: CN)
  Receive Date: 20180402
  Receipt Date: 20180525
  Transmission Date: 20180711
  Serious: Yes (Hospitalization, Other)
  Sender: FDA-Public Use
  Company Number: PHHY2017CN068548

PATIENT
  Age: 22 Year
  Sex: Male
  Weight: 45 kg

DRUGS (21)
  1. AVELOX [Concomitant]
     Active Substance: MOXIFLOXACIN HYDROCHLORIDE
     Indication: PRODUCT USED FOR UNKNOWN INDICATION
     Dosage: 400 MG, QD
     Route: 048
     Dates: start: 20161123, end: 20161207
  2. SILIBININ [Concomitant]
     Active Substance: SILIBININ
     Indication: PRODUCT USED FOR UNKNOWN INDICATION
     Dosage: 70 MG, QD
     Route: 048
     Dates: start: 20161122
  3. MYFORTIC [Suspect]
     Active Substance: MYCOPHENOLATE SODIUM
     Dosage: 1440 MG, QD
     Route: 048
     Dates: start: 20160513, end: 20160519
  4. MYFORTIC [Suspect]
     Active Substance: MYCOPHENOLATE SODIUM
     Dosage: 720 MG, QD
     Route: 048
     Dates: start: 20160818, end: 20160907
  5. RIFAMPICIN [Concomitant]
     Active Substance: RIFAMPIN
     Indication: PRODUCT USED FOR UNKNOWN INDICATION
     Dosage: 450 MG, QD
     Route: 065
     Dates: start: 20161123, end: 20161207
  6. NIFEDIPINE. [Concomitant]
     Active Substance: NIFEDIPINE
     Indication: RENAL HYPERTENSION
     Dosage: 30 MG, QD
     Route: 065
  7. TACROLIMUS. [Concomitant]
     Active Substance: TACROLIMUS
     Indication: PROPHYLAXIS AGAINST TRANSPLANT REJECTION
     Dosage: 1.5 MG/1.5 MG, UNK
     Route: 065
     Dates: start: 20160515, end: 20160523
  8. TACROLIMUS. [Concomitant]
     Active Substance: TACROLIMUS
     Dosage: 1 MG/1 MG, UNK
     Route: 065
     Dates: start: 20160623, end: 20160706
  9. ISONIASID [Concomitant]
     Active Substance: ISONIAZID
     Indication: PRODUCT USED FOR UNKNOWN INDICATION
     Dosage: 300 MG, QD
     Route: 048
     Dates: start: 20161122
  10. MOXIFLOXACIN HYDROCHLORIDE. [Concomitant]
     Active Substance: MOXIFLOXACIN HYDROCHLORIDE
     Indication: PRODUCT USED FOR UNKNOWN INDICATION
     Dosage: 0.4 G, QD
     Route: 048
     Dates: start: 20161122
  11. ISONIASID [Concomitant]
     Active Substance: ISONIAZID
     Indication: PRODUCT USED FOR UNKNOWN INDICATION
     Dosage: 300 MG, QD
     Route: 065
     Dates: start: 20161123, end: 20161207
  12. MYFORTIC [Suspect]
     Active Substance: MYCOPHENOLATE SODIUM
     Dosage: 900 MG, QD
     Route: 048
     Dates: start: 20160707, end: 20160817
  13. TACROLIMUS. [Concomitant]
     Active Substance: TACROLIMUS
     Dosage: 1 MG/0.5 MG
     Route: 065
     Dates: start: 20160707
  14. MYFORTIC [Suspect]
     Active Substance: MYCOPHENOLATE SODIUM
     Indication: RENAL TRANSPLANT
     Dosage: 720 MG, QD
     Route: 048
     Dates: start: 20160512, end: 20160512
  15. MYFORTIC [Suspect]
     Active Substance: MYCOPHENOLATE SODIUM
     Dosage: 900 MG, QD
     Route: 048
     Dates: start: 20160908
  16. MYFORTIC [Suspect]
     Active Substance: MYCOPHENOLATE SODIUM
     Dosage: 1260 MG, QD
     Route: 048
     Dates: start: 20160520, end: 20160622
  17. MYFORTIC [Suspect]
     Active Substance: MYCOPHENOLATE SODIUM
     Dosage: 1080 MG, QD
     Route: 048
     Dates: start: 20160623, end: 20160706
  18. RIFAMPICIN [Concomitant]
     Active Substance: RIFAMPIN
     Indication: PRODUCT USED FOR UNKNOWN INDICATION
     Dosage: 450 MG, QD
     Route: 048
     Dates: start: 20161122
  19. ETHAMBUTOL HYDROCHLORIDE. [Concomitant]
     Active Substance: ETHAMBUTOL HYDROCHLORIDE
     Indication: PRODUCT USED FOR UNKNOWN INDICATION
     Dosage: 0.75 G, QD
     Route: 048
     Dates: start: 20161122
  20. VORICONAZOLE. [Concomitant]
     Active Substance: VORICONAZOLE
     Indication: PRODUCT USED FOR UNKNOWN INDICATION
     Dosage: 200 MG, Q12H
     Route: 065
     Dates: start: 20161123, end: 20161203
  21. TACROLIMUS. [Concomitant]
     Active Substance: TACROLIMUS
     Dosage: 1.5 MG/1 MG, UNK
     Route: 065
     Dates: start: 20160524, end: 20160622

REACTIONS (16)
  - Blood sodium decreased [Unknown]
  - Tuberculosis [Not Recovered/Not Resolved]
  - Fungal infection [Unknown]
  - Neurone-specific enolase increased [Unknown]
  - Neutrophil count increased [Unknown]
  - Pyrexia [Recovered/Resolved]
  - Productive cough [Recovered/Resolved]
  - Night sweats [Recovered/Resolved]
  - Blindness transient [Recovered/Resolved]
  - Blood creatinine increased [Unknown]
  - Klebsiella infection [Not Recovered/Not Resolved]
  - Liver injury [Recovered/Resolved]
  - Keratitis [Recovered/Resolved]
  - Tumour marker increased [Unknown]
  - Blood urea increased [Unknown]
  - Proteinuria [Not Recovered/Not Resolved]

NARRATIVE: CASE EVENT DATE: 20160616
